FAERS Safety Report 6414535-3 (Version None)
Quarter: 2009Q4

REPORT INFORMATION
  Report Type: 
  Country: None (occurrence: None)
  Receive Date: 20091021
  Receipt Date: 20091014
  Transmission Date: 20100525
  Serious: Yes (Death, Hospitalization)
  Sender: FDA-Public Use
  Company Number: 2009AL006576

PATIENT
  Age: 73 Year
  Sex: Male

DRUGS (4)
  1. CARBAMAZEPINE [Suspect]
     Indication: DIABETIC NEPHROPATHY
  2. ANTI-DIABETICS [Concomitant]
  3. ANTIHYPERTENSIVES [Concomitant]
  4. ANTI-LIPIDE [Concomitant]

REACTIONS (17)
  - ANAPLASTIC LARGE CELL LYMPHOMA T- AND NULL-CELL TYPES [None]
  - BLOOD LACTATE DEHYDROGENASE INCREASED [None]
  - BREATH SOUNDS [None]
  - DRUG HYPERSENSITIVITY [None]
  - DRUG RASH WITH EOSINOPHILIA AND SYSTEMIC SYMPTOMS [None]
  - FATIGUE [None]
  - GENERAL PHYSICAL CONDITION ABNORMAL [None]
  - HYPERKERATOSIS [None]
  - HYPONATRAEMIA [None]
  - LEUKOCYTOSIS [None]
  - MULTI-ORGAN DISORDER [None]
  - OEDEMA PERIPHERAL [None]
  - PLEURAL EFFUSION [None]
  - RENAL IMPAIRMENT [None]
  - SOMNOLENCE [None]
  - TUMOUR LYSIS SYNDROME [None]
  - WEIGHT DECREASED [None]
